FAERS Safety Report 12452175 (Version 1)
Quarter: 2016Q2

REPORT INFORMATION
  Report Type: Spontaneous
  Country: KR (occurrence: KR)
  Receive Date: 20160609
  Receipt Date: 20160609
  Transmission Date: 20160815
  Serious: Yes (Hospitalization)
  Sender: FDA-Public Use
  Company Number: KR-HQ SPECIALTY-KR-2016INT000322

PATIENT
  Age: 44 Year
  Sex: Female

DRUGS (2)
  1. 5-FLUOROURACIL                     /00098801/ [Suspect]
     Active Substance: FLUOROURACIL
     Indication: ADENOCARCINOMA GASTRIC
     Dosage: 1530 MG, PER DAY
  2. CISPLATIN. [Suspect]
     Active Substance: CISPLATIN
     Indication: ADENOCARCINOMA GASTRIC
     Dosage: 92 MG, UNK

REACTIONS (4)
  - Renal infarct [Recovered/Resolved]
  - Aortic thrombosis [Recovered/Resolved]
  - Dizziness [Recovered/Resolved]
  - Flank pain [Recovered/Resolved]
